FAERS Safety Report 15545910 (Version 4)
Quarter: 2024Q1

REPORT INFORMATION
  Report Type: Spontaneous
  Country: FR (occurrence: FR)
  Receive Date: 20181024
  Receipt Date: 20240112
  Transmission Date: 20240409
  Serious: Yes (Life-Threatening, Hospitalization, Other)
  Sender: FDA-Public Use
  Company Number: FR-MYLANLABS-2018M1079566

PATIENT
  Age: 75 Year
  Sex: Male
  Weight: 88 kg

DRUGS (34)
  1. PANTOPRAZOLE [Suspect]
     Active Substance: PANTOPRAZOLE
     Indication: Gastrooesophageal reflux disease
     Dosage: 20 MILLIGRAM, QD
     Route: 048
     Dates: start: 20150101, end: 20171025
  2. PANTOPRAZOLE [Suspect]
     Active Substance: PANTOPRAZOLE
     Dosage: 20 MILLIGRAM, QD
     Route: 048
     Dates: start: 2015, end: 20171025
  3. ALPRAZOLAM [Suspect]
     Active Substance: ALPRAZOLAM
     Indication: Depressive symptom
     Dosage: 0.75 MG, QD, 0.25 MG, 3X/DAY (TID)
     Route: 065
     Dates: start: 20170928
  4. ALPRAZOLAM [Suspect]
     Active Substance: ALPRAZOLAM
     Dosage: 0.25 MG, 3X/DAY (TID)
     Route: 048
     Dates: start: 20170728
  5. ALPRAZOLAM [Suspect]
     Active Substance: ALPRAZOLAM
     Dosage: 0.25 MILLIGRAM, QD
     Route: 048
     Dates: start: 20170728
  6. BISOPROLOL [Suspect]
     Active Substance: BISOPROLOL\BISOPROLOL FUMARATE
     Indication: Hypertension
     Dosage: 1.25 MG, ONCE DAILY (QD)
     Route: 048
     Dates: start: 20171006
  7. FUROSEMIDE [Suspect]
     Active Substance: FUROSEMIDE
     Indication: Hypertension
     Dosage: 30 MILLIGRAM, BID (2-1-0), 2X/DAY (BID)
     Route: 048
     Dates: start: 20170825, end: 20171003
  8. FUROSEMIDE [Suspect]
     Active Substance: FUROSEMIDE
     Dosage: 30 MG DAILY (2-1-0), 2X/DAY (BID)
     Route: 048
     Dates: start: 20170825, end: 20171003
  9. FUROSEMIDE [Suspect]
     Active Substance: FUROSEMIDE
     Dosage: 30 MILLIGRAM, QD
     Route: 048
     Dates: start: 20170625, end: 20171003
  10. TERBUTALINE [Suspect]
     Active Substance: TERBUTALINE
     Indication: Lung disorder
     Dosage: 1 DF, QD
     Route: 065
     Dates: start: 20170914, end: 20170921
  11. IRBESARTAN [Suspect]
     Active Substance: IRBESARTAN
     Indication: Hypertension
     Dosage: 300 MG, ONCE DAILY QD
     Route: 048
     Dates: start: 20150101, end: 20171006
  12. IRBESARTAN [Suspect]
     Active Substance: IRBESARTAN
     Dosage: UNK300 MG, ONCE DAILY (QD)
     Route: 048
     Dates: start: 2015, end: 20171006
  13. MIRTAZAPINE [Suspect]
     Active Substance: MIRTAZAPINE
     Indication: Depressive symptom
     Dosage: 15 MG, QD
     Route: 048
     Dates: start: 20170910
  14. AMLODIPINE [Suspect]
     Active Substance: AMLODIPINE BESYLATE
     Indication: Hypertension
     Dosage: 10 MG, ONCE DAILY (QD)
     Route: 048
     Dates: start: 20170825, end: 20170927
  15. METFORMIN [Suspect]
     Active Substance: METFORMIN HYDROCHLORIDE
     Indication: Diabetes mellitus
     Dosage: 500 MG, BID (1000 MG QD)
     Route: 065
     Dates: start: 20170824, end: 20171025
  16. XARELTO [Suspect]
     Active Substance: RIVAROXABAN
     Indication: Atrial fibrillation
     Dosage: 20 MG, QD (1 DF QD)
     Route: 048
     Dates: start: 20170824, end: 20171025
  17. NEFOPAM [Suspect]
     Active Substance: NEFOPAM
     Indication: Pain
     Dosage: 3 DF, QD, 1 DF, 3X/DAY (1 DF, TID)
     Route: 048
  18. NEFOPAM [Suspect]
     Active Substance: NEFOPAM
     Dosage: 3 DOSAGE FORM, QD
     Route: 048
  19. NEFOPAM [Suspect]
     Active Substance: NEFOPAM
     Dosage: 1 DF, 3X/DAY (TID)
     Route: 048
  20. VALIUM [Suspect]
     Active Substance: DIAZEPAM
     Indication: Depressive symptom
     Dosage: 10 MG, QD, 3X/DAY (TID) (3 DF QD)
     Route: 048
     Dates: start: 20170101, end: 20170927
  21. POTASSIUM CHLORIDE [Suspect]
     Active Substance: POTASSIUM CHLORIDE
     Indication: Hypokalaemia
     Dosage: 6 DF, QD, 3 DF DAILY (2-1-0) 2X/DAY (BID)
     Route: 048
     Dates: start: 20170824, end: 20171003
  22. POTASSIUM CHLORIDE [Suspect]
     Active Substance: POTASSIUM CHLORIDE
     Dosage: 3 DF DAILY (2-1-0) 2X/DAY (BID)
     Route: 048
     Dates: start: 20170824, end: 20171003
  23. DAFALGAN [Suspect]
     Active Substance: ACETAMINOPHEN
     Indication: Pain
     Dosage: 3000 MG, QD, 1000 MG, 3X/DAY (TID) (6 DF, QD)
     Route: 048
     Dates: start: 20171009
  24. DAFALGAN [Suspect]
     Active Substance: ACETAMINOPHEN
     Dosage: 1000 MG, 3X/DAY (TID)
     Route: 048
     Dates: start: 20171009
  25. DAFALGAN [Suspect]
     Active Substance: ACETAMINOPHEN
     Dosage: 1000 MILLIGRAM, QD
     Route: 048
     Dates: start: 20171009
  26. LEVOFLOXACIN [Suspect]
     Active Substance: LEVOFLOXACIN
     Indication: Lung disorder
     Dosage: 250 MG, BID (2 DF QD)
     Route: 048
     Dates: start: 20170905, end: 20170919
  27. LEVOFLOXACIN [Suspect]
     Active Substance: LEVOFLOXACIN
     Dosage: 250 MG, 2X/DAY (BID)
     Route: 048
     Dates: start: 20170905, end: 20170919
  28. LEVOFLOXACIN [Suspect]
     Active Substance: LEVOFLOXACIN
     Dosage: 500 MILLIGRAM, QD
     Route: 048
     Dates: start: 20170905, end: 20170919
  29. ESCITALOPRAM OXALATE [Suspect]
     Active Substance: ESCITALOPRAM OXALATE
     Indication: Depressive symptom
     Dosage: 1 DF, ONCE DAILY QD
     Route: 048
     Dates: start: 20170101, end: 20170910
  30. COLCHICINE [Suspect]
     Active Substance: COLCHICINE
     Indication: Gout
     Dosage: 1 MG, DAILY ONCE QD (1 DF QD)
     Route: 048
     Dates: start: 20170914, end: 20170921
  31. METFORMIN [Suspect]
     Active Substance: METFORMIN HYDROCHLORIDE
     Indication: Diabetes mellitus
     Dosage: 500 MG, 2X/DAY (BID)
     Route: 048
     Dates: start: 20170824, end: 20171025
  32. METFORMIN [Suspect]
     Active Substance: METFORMIN HYDROCHLORIDE
     Dosage: 500 MG, 2X/DAY (BID)
     Route: 048
     Dates: start: 20170824, end: 20171025
  33. DIAZEPAM [Suspect]
     Active Substance: DIAZEPAM
     Indication: Depressive symptom
     Dosage: 10 MG, TID (3 DF QD)
     Route: 048
     Dates: start: 20170101, end: 20170927
  34. DIAZEPAM [Suspect]
     Active Substance: DIAZEPAM
     Dosage: 10 MILLIGRAM, QD
     Route: 048
     Dates: start: 20170101, end: 20170927

REACTIONS (1)
  - Agranulocytosis [Recovered/Resolved]

NARRATIVE: CASE EVENT DATE: 20171024
